FAERS Safety Report 25361408 (Version 2)
Quarter: 2025Q3

REPORT INFORMATION
  Report Type: Spontaneous
  Country: US (occurrence: US)
  Receive Date: 20250527
  Receipt Date: 20250803
  Transmission Date: 20251020
  Serious: Yes (Life-Threatening, Hospitalization, Other)
  Sender: ALEXION PHARMACEUTICALS
  Company Number: US-AstraZeneca-CH-00877109AP

PATIENT
  Sex: Female

DRUGS (1)
  1. BUDESONIDE\FORMOTEROL FUMARATE [Suspect]
     Active Substance: BUDESONIDE\FORMOTEROL FUMARATE
     Indication: Asthma
     Route: 065

REACTIONS (7)
  - Device delivery system issue [Unknown]
  - Wrong technique in device usage process [Unknown]
  - Cataract [Unknown]
  - Drug dose omission by device [Unknown]
  - Asthma [Unknown]
  - Wrong technique in product usage process [Unknown]
  - Poor quality device used [Unknown]
